FAERS Safety Report 6553519-1 (Version None)
Quarter: 2010Q1

REPORT INFORMATION
  Report Type: 
  Country: None (occurrence: None)
  Receive Date: 20100127
  Receipt Date: 20100118
  Transmission Date: 20100710
  Serious: Yes (Hospitalization)
  Sender: FDA-Public Use
  Company Number: JP-ROCHE-676724

PATIENT
  Sex: Male

DRUGS (6)
  1. CELLCEPT [Suspect]
     Route: 048
  2. CELLCEPT [Suspect]
     Route: 048
     Dates: end: 20091215
  3. PROGRAF [Suspect]
     Dosage: DRUG: PROGRAF(TACROLIMUS HYDRATE), DOSE FORM: ORAL FORMULATION (NOT OTHERWISE SPECIFIED)
     Route: 048
  4. PROGRAF [Suspect]
     Route: 048
     Dates: end: 20091215
  5. HORMON [Suspect]
     Dosage: DRUG: ADRENAL HORMONE PREPARATIONS()
     Route: 065
  6. PREDNISOLONE [Suspect]
     Route: 048
     Dates: end: 20091215

REACTIONS (7)
  - ANAEMIA [None]
  - BLOOD LACTATE DEHYDROGENASE INCREASED [None]
  - DYSGEUSIA [None]
  - NAUSEA [None]
  - PLATELET COUNT DECREASED [None]
  - RENAL IMPAIRMENT [None]
  - VOMITING [None]
